FAERS Safety Report 9380682 (Version 1)
Quarter: 2013Q3

REPORT INFORMATION
  Report Type: Spontaneous
  Country: JP (occurrence: JP)
  Receive Date: 20130702
  Receipt Date: 20130702
  Transmission Date: 20140515
  Serious: Yes (Hospitalization)
  Sender: FDA-Public Use
  Company Number: JP-JNJFOC-20130609080

PATIENT
  Age: 75 Year
  Sex: Female

DRUGS (8)
  1. TRAMCET [Suspect]
     Indication: OSTEOARTHRITIS
     Dosage: 1 PER 1 DAY
     Route: 048
     Dates: start: 20130314, end: 20130530
  2. PRIMPERAN [Suspect]
     Indication: PRODUCT USED FOR UNKNOWN INDICATION
     Dosage: 2 PER 1 DAY
     Route: 048
     Dates: start: 20130314, end: 20130530
  3. BAYASPIRIN [Concomitant]
     Indication: HYPERTENSION
     Route: 048
  4. AMLODIPINE [Concomitant]
     Route: 048
  5. TAKEPRON [Concomitant]
     Route: 048
  6. LENDORMIN [Concomitant]
     Route: 048
  7. MYSLEE [Concomitant]
     Route: 048
  8. L-CARTIN [Concomitant]
     Route: 048
     Dates: start: 20130418

REACTIONS (3)
  - Myocardial infarction [Unknown]
  - Vision blurred [Unknown]
  - Tremor [Unknown]
